FAERS Safety Report 6321547-7 (Version None)
Quarter: 2009Q3

REPORT INFORMATION
  Report Type: 
  Country: None (occurrence: None)
  Receive Date: 20090819
  Receipt Date: 20090807
  Transmission Date: 20100115
  Serious: Yes (Hospitalization, Other)
  Sender: FDA-Public Use
  Company Number: 2009AP001079

PATIENT
  Age: 44 Year
  Sex: Female

DRUGS (4)
  1. CARBAMAZEPINE [Suspect]
     Indication: MOOD ALTERED
     Dosage: 600 MG;
  2. QUETIAPINE FUMARATE [Suspect]
     Dosage: 700 MG, QD;
  3. ZOLPIDEM [Concomitant]
  4. RISPERIDONE [Concomitant]

REACTIONS (6)
  - AGITATION [None]
  - ANTIPSYCHOTIC DRUG LEVEL BELOW THERAPEUTIC [None]
  - CONDITION AGGRAVATED [None]
  - DRUG INTERACTION [None]
  - NERVOUSNESS [None]
  - PSYCHOTIC DISORDER [None]
